FAERS Safety Report 11787000 (Version 1)
Quarter: 2015Q4

REPORT INFORMATION
  Report Type: Spontaneous
  Country: IT (occurrence: IT)
  Receive Date: 20151130
  Receipt Date: 20151130
  Transmission Date: 20160305
  Serious: Yes (Hospitalization)
  Sender: FDA-Public Use
  Company Number: IT-SA-2015SA187866

PATIENT
  Age: 63 Year
  Sex: Male

DRUGS (6)
  1. PLAVIX [Suspect]
     Active Substance: CLOPIDOGREL BISULFATE
     Indication: CORONARY ANGIOPLASTY
     Route: 048
     Dates: start: 20150901, end: 20150916
  2. TORVAST [Concomitant]
     Active Substance: ATORVASTATIN
     Dosage: 80 MG
  3. PANTORC [Concomitant]
     Active Substance: PANTOPRAZOLE SODIUM
     Dosage: 20 MG
  4. SINTROM [Suspect]
     Active Substance: ACENOCOUMAROL
     Indication: CORONARY ANGIOPLASTY
     Dosage: 4 MG TABLETS DIVISIBLE INTO FOUR PARTS
     Route: 048
     Dates: start: 20150901, end: 20150916
  5. TRIATEC [Concomitant]
     Active Substance: RAMIPRIL
     Dosage: 2.5 MG?DIVISIBLE TABLETS
  6. CARDIOASPIRIN [Suspect]
     Active Substance: ASPIRIN
     Indication: CORONARY ANGIOPLASTY
     Route: 048
     Dates: start: 20150901, end: 20150916

REACTIONS (2)
  - Haematoma [Recovered/Resolved]
  - Vascular pseudoaneurysm [Recovered/Resolved]

NARRATIVE: CASE EVENT DATE: 20150916
